FAERS Safety Report 11142717 (Version 1)
Quarter: 2015Q2

REPORT INFORMATION
  Report Type: Spontaneous
  Country: US (occurrence: None)
  Receive Date: 20150526
  Receipt Date: 20150526
  Transmission Date: 20150821
  Serious: Yes (Disabling)
  Sender: FDA-Public Use
  Company Number: None

PATIENT
  Age: 45 Year
  Sex: Male
  Weight: 99.79 kg

DRUGS (2)
  1. IBUPROFFIN [Concomitant]
  2. ZICAM NOS [Suspect]
     Active Substance: ACETAMINOPHEN\CHLORPHENIRAMINE MALEATE\DEXTROMETHORPHAN HYDROBROMIDE\PHENYLEPHRINE HYDROCHLORIDE OR ACETAMINOPHEN\DEXTROMETHORPHAN HYDROBROMIDE\DOXYLAMINE SUCCINATE\PHENYLEPHRINE HYDROCHLORIDE
     Indication: NASOPHARYNGITIS
     Dosage: 1SPRY  TWICE DAILY  NOSE
     Route: 045
     Dates: start: 19980101, end: 19990909

REACTIONS (3)
  - Mucosal inflammation [None]
  - Scab [None]
  - Impaired healing [None]

NARRATIVE: CASE EVENT DATE: 19981101
